FAERS Safety Report 5760619-2 (Version None)
Quarter: 2008Q2

REPORT INFORMATION
  Report Type: 
  Country: None (occurrence: None)
  Receive Date: 20080602
  Receipt Date: 20080515
  Transmission Date: 20081010
  Serious: Yes (Hospitalization)
  Sender: FDA-Public Use
  Company Number: 2008S1008500

PATIENT
  Age: 82 Year
  Sex: Female
  Weight: 54.4316 kg

DRUGS (5)
  1. ACTIQ [Suspect]
     Indication: BACK PAIN
     Dosage: 600 UG;3 TIMES A DAY; BUCCAL
     Route: 002
     Dates: start: 20020101, end: 20080101
  2. ACTIQ [Suspect]
     Dosage: 600 UG;3 TIMES A DAY; BUCCAL
     Route: 002
     Dates: start: 20080101
  3. OXYTONIN [Concomitant]
  4. FENTANYL TRANSDERMAL SYSTEM [Suspect]
     Indication: BACK PAIN
     Dosage: TRANSDERMAL
     Route: 062
     Dates: start: 20020101, end: 20080101
  5. FENTANYL TRANSDERMAL SYSTEM [Suspect]
     Indication: BACK PAIN
     Dosage: TRANSDERMAL
     Route: 062
     Dates: start: 20080101

REACTIONS (8)
  - BLOOD TEST ABNORMAL [None]
  - CONSTIPATION [None]
  - DRUG WITHDRAWAL SYNDROME [None]
  - DYSPNOEA [None]
  - HYPOTENSION [None]
  - NAUSEA [None]
  - SCREAMING [None]
  - WEIGHT DECREASED [None]
